FAERS Safety Report 5928631-8 (Version None)
Quarter: 2008Q4

REPORT INFORMATION
  Report Type: 
  Country: None (occurrence: None)
  Receive Date: 20081023
  Receipt Date: 20081018
  Transmission Date: 20090506
  Serious: No
  Sender: FDA-Public Use
  Company Number: US-B.I. PHARMACEUTICALS,INC./RIDGEFIELD-2008-BP-16027BP

PATIENT
  Age: 86 Year
  Sex: Female

DRUGS (3)
  1. SPIRIVA [Suspect]
     Dosage: 18MCG
     Route: 055
     Dates: start: 20070101
  2. NORVASC [Concomitant]
     Indication: HYPERTENSION
     Route: 048
  3. EYE DROPS [Concomitant]
     Indication: GLAUCOMA
     Route: 031

REACTIONS (3)
  - CONSTIPATION [None]
  - DRY MOUTH [None]
  - DYSURIA [None]
